FAERS Safety Report 9367701 (Version 2)
Quarter: 2013Q3

REPORT INFORMATION
  Report Type: Spontaneous
  Country: FR (occurrence: FR)
  Receive Date: 20130625
  Receipt Date: 20130729
  Transmission Date: 20140515
  Serious: Yes (Hospitalization)
  Sender: FDA-Public Use
  Company Number: FR-NOVOPROD-381172

PATIENT
  Age: 65 Year
  Sex: Male

DRUGS (9)
  1. GLUCAGEN [Suspect]
     Indication: ABDOMINAL EXPLORATION
     Route: 042
     Dates: start: 20130513, end: 20130513
  2. ULTRAVIST [Suspect]
     Indication: ABDOMINAL EXPLORATION
     Route: 042
     Dates: start: 20130513, end: 20130513
  3. COLOPEG                            /00877901/ [Concomitant]
     Indication: BOWEL PREPARATION
  4. AMLODIPINE [Concomitant]
     Indication: HYPERTENSION
     Dosage: UNK
     Dates: end: 20130513
  5. PRITOR                             /01102601/ [Concomitant]
     Indication: HYPERTENSION
     Route: 048
  6. INEXIUM                            /01479302/ [Concomitant]
     Route: 048
  7. PRAVASTATINE [Concomitant]
     Route: 048
  8. KARDEGIC [Concomitant]
     Route: 048
     Dates: end: 201304
  9. TELMISARTAN [Concomitant]
     Indication: HYPERTENSION
     Dosage: UNK
     Dates: end: 20130513

REACTIONS (3)
  - Respiratory distress [Recovered/Resolved]
  - Hypertension [Recovered/Resolved]
  - Hypotension [Recovered/Resolved]
